FAERS Safety Report 7973107-X (Version None)
Quarter: 2011Q4

REPORT INFORMATION
  Report Type: 
  Country: None (occurrence: None)
  Receive Date: 20111213
  Receipt Date: 20111208
  Transmission Date: 20120403
  Serious: Yes (Death, Hospitalization)
  Sender: FDA-Public Use
  Company Number: US-ASTELLAS-2011US006367

PATIENT
  Sex: Female

DRUGS (1)
  1. ERLOTINIB HYDROCHLORIDE [Suspect]
     Indication: LUNG CARCINOMA CELL TYPE UNSPECIFIED STAGE 0
     Dosage: 150 MG, UID/QD
     Route: 048
     Dates: start: 20110907

REACTIONS (7)
  - DYSPNOEA [None]
  - TRACHEAL OBSTRUCTION [None]
  - DYSPHAGIA [None]
  - COUGH [None]
  - HAEMOPTYSIS [None]
  - TRACHEO-OESOPHAGEAL FISTULA [None]
  - NEOPLASM MALIGNANT [None]
